FAERS Safety Report 6120084-2 (Version None)
Quarter: 2009Q1

REPORT INFORMATION
  Report Type: 
  Country: None (occurrence: None)
  Receive Date: 20090311
  Receipt Date: 20081107
  Transmission Date: 20090719
  Serious: Yes (Other)
  Sender: FDA-Public Use
  Company Number: 2009PL000069

PATIENT
  Age: 66 Year
  Sex: Male

DRUGS (2)
  1. AZATHIOPRINE [Suspect]
     Indication: WEGENER'S GRANULOMATOSIS
  2. CORTISONE ACETATE [Suspect]
     Indication: WEGENER'S GRANULOMATOSIS

REACTIONS (2)
  - NEUROENDOCRINE CARCINOMA OF THE SKIN [None]
  - SKIN GRAFT [None]
